FAERS Safety Report 12184021 (Version 4)
Quarter: 2016Q1

REPORT INFORMATION
  Report Type: Spontaneous
  Country: JP (occurrence: JP)
  Receive Date: 20160316
  Receipt Date: 20160325
  Transmission Date: 20160526
  Serious: Yes (Other)
  Sender: FDA-Public Use
  Company Number: PHHY2016JP034314

PATIENT
  Age: 72 Year
  Sex: Male
  Weight: 68 kg

DRUGS (14)
  1. FENTANYL. [Concomitant]
     Active Substance: FENTANYL
     Indication: INDUCTION OF ANAESTHESIA
     Dosage: 50 UG
     Route: 065
  2. ATROPINE. [Concomitant]
     Active Substance: ATROPINE
     Indication: MUSCLE RELAXANT THERAPY
     Dosage: 0.5 MG
     Route: 065
  3. MEROPENEM. [Concomitant]
     Active Substance: MEROPENEM
     Indication: PYREXIA
     Dosage: 0.5 MG, QD
     Route: 065
  4. IMMUNOGLOBULIN HUMAN [Concomitant]
     Active Substance: HUMAN IMMUNOGLOBULIN G
     Indication: PYREXIA
     Dosage: 2500 MG
     Route: 065
  5. DICLOFENAC [Suspect]
     Active Substance: DICLOFENAC
     Indication: PYREXIA
     Dosage: 25 MG
     Route: 065
  6. SEVOFLURANE. [Suspect]
     Active Substance: SEVOFLURANE
     Indication: MAINTENANCE OF ANAESTHESIA
     Dosage: 1-1.5%
     Route: 065
  7. DILTIAZEM [Concomitant]
     Active Substance: DILTIAZEM
     Indication: TACHYCARDIA
     Dosage: 10 MG
     Route: 065
  8. NEOSTIGMINE [Concomitant]
     Active Substance: NEOSTIGMINE
     Indication: MUSCLE RELAXANT THERAPY
     Dosage: 2 MG, UNK
     Route: 065
  9. OXYGEN. [Concomitant]
     Active Substance: OXYGEN
     Indication: MAINTENANCE OF ANAESTHESIA
     Dosage: 1 L/MIN
     Route: 065
  10. SIVELESTAT [Concomitant]
     Active Substance: SIVELESTAT
     Indication: PYREXIA
     Dosage: 100 MG, QD
     Route: 065
  11. PROPOFOL. [Concomitant]
     Active Substance: PROPOFOL
     Indication: INDUCTION OF ANAESTHESIA
     Dosage: 70 MG
     Route: 065
  12. ROCURONIUM [Concomitant]
     Active Substance: ROCURONIUM BROMIDE
     Indication: INDUCTION OF ANAESTHESIA
     Dosage: 40 MG
     Route: 065
  13. ROPIVACAINE [Concomitant]
     Active Substance: ROPIVACAINE
     Indication: MAINTENANCE OF ANAESTHESIA
     Dosage: 6 ML, QH
     Route: 008
  14. NOREPINEPHRINE [Concomitant]
     Active Substance: NOREPINEPHRINE\NOREPINEPHRINE BITARTRATE
     Indication: BLOOD PRESSURE ABNORMAL

REACTIONS (15)
  - Dehydration [Unknown]
  - Hyperhidrosis [Unknown]
  - Tachypnoea [Unknown]
  - Cardiac arrest [Unknown]
  - Acidosis [Unknown]
  - Blood pressure decreased [Unknown]
  - Shock [Unknown]
  - Loss of consciousness [Not Recovered/Not Resolved]
  - Hyperthermia malignant [Unknown]
  - Seizure [Unknown]
  - Muscle rigidity [Unknown]
  - Hypopnoea [Unknown]
  - Hypoxic-ischaemic encephalopathy [Unknown]
  - Bradycardia [Unknown]
  - Coma [Unknown]
